FAERS Safety Report 5725150-9 (Version None)
Quarter: 2008Q2

REPORT INFORMATION
  Report Type: 
  Country: None (occurrence: None)
  Receive Date: 20080501
  Receipt Date: 20080422
  Transmission Date: 20081010
  Serious: Yes (Hospitalization)
  Sender: FDA-Public Use
  Company Number: A0648002A

PATIENT
  Sex: Male

DRUGS (12)
  1. ADVAIR HFA [Suspect]
     Indication: CHRONIC OBSTRUCTIVE PULMONARY DISEASE
     Dosage: 1PUFF TWICE PER DAY
     Route: 055
     Dates: start: 20040101
  2. OXYGEN [Concomitant]
  3. ALBUTEROL [Concomitant]
  4. ATROVENT [Concomitant]
  5. IPRATROPIUM BROMIDE [Concomitant]
  6. MOBIC [Concomitant]
  7. LIPITOR [Concomitant]
  8. LASIX [Concomitant]
  9. COZAAR [Concomitant]
  10. MUCINEX [Concomitant]
  11. POTASSIUM CHLORIDE [Concomitant]
  12. VITAMIN B-12 [Concomitant]

REACTIONS (7)
  - ATELECTASIS [None]
  - BODY TEMPERATURE INCREASED [None]
  - BRONCHITIS [None]
  - CATARACT OPERATION [None]
  - DYSPNOEA [None]
  - HAEMOPTYSIS [None]
  - PNEUMONIA [None]
